FAERS Safety Report 8937025 (Version 2)
Quarter: 2013Q1

REPORT INFORMATION
  Report Type: Report from Study
  Country: DE (occurrence: DE)
  Receive Date: 20121130
  Receipt Date: 20130325
  Transmission Date: 20140127
  Serious: Yes (Hospitalization)
  Sender: FDA-Public Use
  Company Number: DE-AMGEN-DEUCT2012076544

PATIENT
  Age: 58 Year
  Sex: Female

DRUGS (17)
  1. ETANERCEPT [Suspect]
     Indication: RHEUMATOID ARTHRITIS
     Dosage: 25 MG, QWK
     Dates: end: 201207
  2. SALAZOSULFAPYRIDINE [Suspect]
     Dosage: 3000 MG, 1X/DAY
     Dates: start: 201207
  3. PLAQUENIL                          /00072602/ [Suspect]
     Dosage: 400 MG, 1X/DAY
     Dates: start: 201207
  4. QUENSYL [Concomitant]
     Dosage: UNK
  5. VALORON                            /00205402/ [Concomitant]
     Dosage: UNK
  6. SINUPRET                           /00578801/ [Concomitant]
     Dosage: UNK
  7. PREDNISOLON                        /00016201/ [Concomitant]
     Dosage: UNK
  8. ACETAMINOPHEN [Concomitant]
     Dosage: UNK
  9. PANTOZOL [Concomitant]
     Dosage: UNK
  10. MAGNESIUM VERLA                    /01486818/ [Concomitant]
     Dosage: UNK
  11. L-THYROXIN [Concomitant]
     Dosage: UNK
  12. DEKRISTOL [Concomitant]
     Dosage: UNK
  13. CALCIUM [Concomitant]
     Dosage: UNK
  14. BISOPROLOL [Concomitant]
     Dosage: UNK
  15. VALERIAN ROOT [Concomitant]
     Dosage: UNK
  16. AZULFIDINE [Concomitant]
     Dosage: UNK
  17. NASONEX [Concomitant]
     Dosage: UNK

REACTIONS (2)
  - Rheumatoid arthritis [Not Recovered/Not Resolved]
  - Sinusitis [Not Recovered/Not Resolved]
